FAERS Safety Report 6376545-4 (Version None)
Quarter: 2009Q3

REPORT INFORMATION
  Report Type: 
  Country: None (occurrence: None)
  Receive Date: 20090925
  Receipt Date: 20090917
  Transmission Date: 20100115
  Serious: Yes (Other)
  Sender: FDA-Public Use
  Company Number: BR-PFIZER INC-2009270285

PATIENT
  Age: 37 Year

DRUGS (2)
  1. DEPO-PROVERA [Suspect]
     Indication: OFF LABEL USE
     Dosage: 50 MG, UNK
     Route: 030
     Dates: start: 20090910, end: 20090910
  2. DEPO-PROVERA [Suspect]
     Indication: MENORRHAGIA

REACTIONS (5)
  - ABDOMINAL DISTENSION [None]
  - ALLERGIC COUGH [None]
  - BRONCHITIS [None]
  - PHARYNGEAL OEDEMA [None]
  - SWELLING FACE [None]
